FAERS Safety Report 19139384 (Version 1)
Quarter: 2021Q2

REPORT INFORMATION
  Report Type: Spontaneous
  Country: US (occurrence: US)
  Receive Date: 20210414
  Receipt Date: 20210414
  Transmission Date: 20210717
  Serious: Yes (Hospitalization)
  Sender: FDA-Public Use
  Company Number: None

PATIENT
  Age: 62 Year
  Sex: Male

DRUGS (18)
  1. ASPIRIN CHW [Concomitant]
  2. FINASTERIDE. [Concomitant]
     Active Substance: FINASTERIDE
  3. NORTRIPTYLIN [Concomitant]
     Active Substance: NORTRIPTYLINE
  4. TAMSULOSIN [Concomitant]
     Active Substance: TAMSULOSIN
  5. ABIRATERONE ACETATE 250MG TAB [Suspect]
     Active Substance: ABIRATERONE ACETATE
     Indication: PROSTATE CANCER
     Dosage: 4 TABS (1000MG) QD PO
     Route: 048
     Dates: start: 20201114
  6. AMOXICILLIN. [Concomitant]
     Active Substance: AMOXICILLIN
  7. BUPROPN HCL XL [Concomitant]
  8. CEPHALEXIN. [Concomitant]
     Active Substance: CEPHALEXIN
  9. PREDNISONE. [Concomitant]
     Active Substance: PREDNISONE
  10. SMZ/TMP DS [Concomitant]
     Active Substance: SULFAMETHOXAZOLE\TRIMETHOPRIM
  11. TRAMADOL HCL [Concomitant]
     Active Substance: TRAMADOL HYDROCHLORIDE
  12. METOPROLOL ER [Concomitant]
     Active Substance: METOPROLOL SUCCINATE
  13. XARELTO [Concomitant]
     Active Substance: RIVAROXABAN
  14. METOPROL SUC ER [Concomitant]
     Active Substance: METOPROLOL SUCCINATE
  15. ROSUVASTATIN. [Concomitant]
     Active Substance: ROSUVASTATIN
  16. AMLOD/BENAZP [Concomitant]
  17. FEROSUL [Concomitant]
     Active Substance: FERROUS SULFATE
  18. PANTOPRAZOLE [Concomitant]
     Active Substance: PANTOPRAZOLE

REACTIONS (3)
  - Prostatic haemorrhage [None]
  - Urinary bladder haemorrhage [None]
  - Therapy interrupted [None]

NARRATIVE: CASE EVENT DATE: 20210228
